FAERS Safety Report 10554004 (Version 1)
Quarter: 2014Q4

REPORT INFORMATION
  Report Type: Spontaneous
  Country: US (occurrence: US)
  Receive Date: 20141030
  Receipt Date: 20141030
  Transmission Date: 20150529
  Serious: No
  Sender: FDA-Public Use
  Company Number: US-EISAI MEDICAL RESEARCH-E3810-07173-SPO-US

PATIENT
  Age: 55 Year
  Sex: Female

DRUGS (3)
  1. RABEPRAZOLE [Suspect]
     Active Substance: RABEPRAZOLE
     Indication: GASTROOESOPHAGEAL REFLUX DISEASE
     Dosage: 20 MG ONCE DAILY
     Route: 048
     Dates: start: 2007, end: 2007
  2. RABEPRAZOLE [Suspect]
     Active Substance: RABEPRAZOLE
     Route: 048
     Dates: start: 2007, end: 201404
  3. RABEPRAZOLE [Suspect]
     Active Substance: RABEPRAZOLE
     Route: 048
     Dates: start: 201404

REACTIONS (1)
  - Drug ineffective [Recovering/Resolving]

NARRATIVE: CASE EVENT DATE: 2011
